FAERS Safety Report 8777867 (Version 1)
Quarter: 2012Q4

REPORT INFORMATION
  Report Type: 
  Country: US (occurrence: US)
  Receive Date: 20120912
  Receipt Date: 20120912
  Transmission Date: 20130627
  Serious: Yes (Death)
  Sender: FDA-Public Use
  Company Number: PHEH2012US017600

PATIENT
  Sex: Male

DRUGS (2)
  1. TOBI [Suspect]
     Dosage: 300 mg, BID I28 days on and 28 days off)
  2. ASPIRIN [Concomitant]
     Dosage: 81 mg, UNK

REACTIONS (1)
  - Death [Fatal]
